FAERS Safety Report 7172339-0 (Version None)
Quarter: 2010Q4

REPORT INFORMATION
  Report Type: 
  Country: None (occurrence: None)
  Receive Date: 20101217
  Receipt Date: 20100207
  Transmission Date: 20110411
  Serious: No
  Sender: FDA-Public Use
  Company Number: US-AMGEN-KDL391402

PATIENT

DRUGS (11)
  1. ENBREL [Suspect]
     Indication: SPONDYLITIS
     Dosage: 50 MG, QWK
     Route: 058
     Dates: start: 20100101, end: 20100208
  2. ACETAMINOPHEN AND HYDROCODONE BITARTRATE [Concomitant]
     Dosage: UNK UNK, UNK
  3. GABAPENTIN [Concomitant]
     Dosage: 100 MG, QD
  4. LORSARTAN POTASSIUM HYDROCHLORIDE [Concomitant]
     Dosage: 25 MG, QD
  5. CAFERGOT [Concomitant]
     Dosage: 100 MG, QD
  6. ZOLPIDEM TARTRATE [Concomitant]
     Dosage: 10 MG, UNK
  7. DIMENHYDRINATE [Concomitant]
     Dosage: 50 MG, QD
  8. OMEPRAZOLE [Concomitant]
     Dosage: 40 MG, QD
  9. IBUPROFEN [Concomitant]
     Dosage: 200 MG, QD
  10. TARKA [Concomitant]
     Dosage: UNK UNK, QD
  11. RANITIDINE [Concomitant]
     Dosage: 150 MG, QD

REACTIONS (11)
  - ANKYLOSING SPONDYLITIS [None]
  - EPICONDYLITIS [None]
  - EXCORIATION [None]
  - INJECTION SITE ERYTHEMA [None]
  - INJECTION SITE IRRITATION [None]
  - INJECTION SITE PAIN [None]
  - INJECTION SITE REACTION [None]
  - INJECTION SITE SWELLING [None]
  - LOCALISED INFECTION [None]
  - MIDDLE INSOMNIA [None]
  - UPPER RESPIRATORY TRACT INFECTION [None]
